FAERS Safety Report 7794266-8 (Version None)
Quarter: 2011Q4

REPORT INFORMATION
  Report Type: 
  Country: None (occurrence: None)
  Receive Date: 20111004
  Receipt Date: 20110926
  Transmission Date: 20120403
  Serious: Yes (Hospitalization)
  Sender: FDA-Public Use
  Company Number: US-ASTELLAS-2011US006171

PATIENT
  Sex: Male
  Weight: 73 kg

DRUGS (29)
  1. ERLOTINIB HYDROCHLORIDE [Suspect]
     Indication: METASTATIC NEOPLASM
  2. DOCETAXEL [Suspect]
     Indication: METASTATIC NEOPLASM
  3. DEXAMETHASONE [Concomitant]
     Indication: PAIN
     Dosage: 1-1 1/2 DF, BID
     Route: 065
     Dates: start: 20110825
  4. MS CONTIN [Concomitant]
     Indication: PAIN
     Dosage: 2 DF, Q12 HOURS
     Route: 048
     Dates: start: 20110825
  5. PROTONIX [Concomitant]
     Indication: PRODUCT USED FOR UNKNOWN INDICATION
     Dosage: 1 DF, UID/QD
     Route: 048
     Dates: start: 20110825
  6. MANNITOL [Concomitant]
     Indication: PRODUCT USED FOR UNKNOWN INDICATION
     Dosage: 25 G, UNKNOWN/D
     Route: 042
     Dates: start: 20110829
  7. CISPLATIN [Suspect]
     Indication: METASTATIC NEOPLASM
  8. ZOFRAN [Concomitant]
     Indication: PRODUCT USED FOR UNKNOWN INDICATION
     Dosage: 8 MG, PRN
     Route: 048
     Dates: start: 20110818
  9. ERLOTINIB HYDROCHLORIDE [Suspect]
     Indication: TONSIL CANCER
     Dosage: 150 MG, UID/QD
     Route: 048
     Dates: start: 20110829
  10. LISINOPRIL [Concomitant]
     Indication: PRODUCT USED FOR UNKNOWN INDICATION
     Dosage: 10 MG, UID/QD
     Route: 048
     Dates: start: 20110818
  11. MAGNESIUM [Concomitant]
     Indication: PRODUCT USED FOR UNKNOWN INDICATION
     Dosage: 150 MG, UID/QD
     Route: 048
     Dates: start: 20110818
  12. MIRALAX [Concomitant]
     Indication: CONSTIPATION
     Dosage: 1 SCOOP
     Route: 048
     Dates: start: 20110825
  13. SODIUM CHLORIDE INJ [Concomitant]
     Indication: PRODUCT USED FOR UNKNOWN INDICATION
     Dosage: 1000 ML + 500 ML, UNK
     Route: 042
     Dates: start: 20110829
  14. MORPHINE [Concomitant]
     Indication: BREAKTHROUGH PAIN
     Dosage: 1/2 7.5 MG
     Route: 048
     Dates: start: 20110825
  15. ACTOS [Concomitant]
     Indication: PRODUCT USED FOR UNKNOWN INDICATION
     Dosage: 45 MG, UID/QD
     Route: 048
  16. CALCIUM CARBONATE [Concomitant]
     Indication: PRODUCT USED FOR UNKNOWN INDICATION
     Dosage: 300 MG, UID/QD
     Route: 048
     Dates: start: 20110818
  17. COQ10 [Concomitant]
     Indication: PRODUCT USED FOR UNKNOWN INDICATION
     Dosage: 2 DF, UID/QD
     Route: 048
     Dates: start: 20110818
  18. MULTI-VITAMIN [Concomitant]
     Indication: PRODUCT USED FOR UNKNOWN INDICATION
     Dosage: 1 DF, UID/QD
     Route: 048
     Dates: start: 20110818
  19. PROBIOTIC [Concomitant]
     Indication: PRODUCT USED FOR UNKNOWN INDICATION
     Dosage: 2 MG, BID
     Route: 048
     Dates: start: 20110818
  20. ONDANSETRON HCL [Concomitant]
     Indication: PRODUCT USED FOR UNKNOWN INDICATION
     Dosage: 8 MG, UNKNOWN/D
     Route: 042
     Dates: start: 20110829
  21. METOPROLOL SUCCINATE [Concomitant]
     Indication: PRODUCT USED FOR UNKNOWN INDICATION
     Dosage: 50 MG, BID
     Route: 048
     Dates: start: 20110818
  22. DEXAMETHASONE SODIUM PHOSPHATE [Concomitant]
     Indication: PRODUCT USED FOR UNKNOWN INDICATION
     Dosage: 12 MG, UNKNOWN/D
     Route: 042
  23. LISINOPRIL [Concomitant]
     Dosage: 20 MG, UID/QD
     Route: 048
     Dates: start: 20110829
  24. LOVAZA [Concomitant]
     Indication: PRODUCT USED FOR UNKNOWN INDICATION
     Dosage: 2 DF, BID
     Route: 048
     Dates: start: 20110818
  25. DOCETAXEL [Suspect]
     Indication: TONSIL CANCER
     Dosage: 75 MG/M2, Q3W
     Route: 042
     Dates: start: 20110829
  26. CISPLATIN [Suspect]
     Indication: TONSIL CANCER
     Dosage: 75 MG/M2, Q3W
     Route: 042
     Dates: start: 20110829
  27. CHROMIUM PICOLINATE [Concomitant]
     Indication: PRODUCT USED FOR UNKNOWN INDICATION
     Dosage: 500 UG, UID/QD
     Route: 048
     Dates: start: 20110818
  28. VITAMIN D [Concomitant]
     Indication: PRODUCT USED FOR UNKNOWN INDICATION
     Dosage: 400 MG, UID/QD
     Route: 048
     Dates: start: 20110818
  29. APREPITANT [Concomitant]
     Indication: PRODUCT USED FOR UNKNOWN INDICATION
     Dosage: 150 MG, UNKNOWN/D
     Route: 042
     Dates: start: 20110829

REACTIONS (8)
  - FATIGUE [None]
  - PHARYNGEAL INFLAMMATION [None]
  - DYSPHAGIA [None]
  - HYPONATRAEMIA [None]
  - STOMATITIS [None]
  - DEHYDRATION [None]
  - OFF LABEL USE [None]
  - OESOPHAGEAL CANDIDIASIS [None]
